FAERS Safety Report 24889952 (Version 1)
Quarter: 2025Q1

REPORT INFORMATION
  Report Type: Spontaneous
  Country: TW (occurrence: TW)
  Receive Date: 20250127
  Receipt Date: 20250127
  Transmission Date: 20250409
  Serious: Yes (Other)
  Sender: DR REDDYS
  Company Number: TW-MLMSERVICE-20250114-PI356627-00101-1

PATIENT
  Age: 50 Year
  Sex: Female

DRUGS (6)
  1. DOXORUBICIN [Suspect]
     Active Substance: DOXORUBICIN
     Indication: Endometriosis
     Dates: start: 2019
  2. DOXORUBICIN [Suspect]
     Active Substance: DOXORUBICIN
     Indication: Endometrial cancer
  3. PACLITAXEL [Suspect]
     Active Substance: PACLITAXEL
     Indication: Endometriosis
     Dates: start: 2019
  4. PACLITAXEL [Suspect]
     Active Substance: PACLITAXEL
     Indication: Endometrial cancer
  5. CISPLATIN [Suspect]
     Active Substance: CISPLATIN
     Indication: Endometriosis
     Dates: start: 2019
  6. CISPLATIN [Suspect]
     Active Substance: CISPLATIN
     Indication: Endometrial cancer

REACTIONS (1)
  - Febrile neutropenia [Unknown]
